FAERS Safety Report 7720563-8 (Version None)
Quarter: 2011Q3

REPORT INFORMATION
  Report Type: 
  Country: None (occurrence: None)
  Receive Date: 20110831
  Receipt Date: 20110831
  Transmission Date: 20111222
  Serious: No
  Sender: FDA-Public Use
  Company Number: None

PATIENT
  Sex: Male
  Weight: 20.865 kg

DRUGS (2)
  1. PRAMOXINE 1% CREAM [Concomitant]
  2. HYDROCORTISONE ACETATE [Suspect]
     Indication: ARTHROPOD BITE
     Dosage: APPLY TO AFFECTED AREA
     Route: 061
     Dates: start: 20110830, end: 20110830

REACTIONS (2)
  - PRODUCT SUBSTITUTION ISSUE [None]
  - HYPERSENSITIVITY [None]
